FAERS Safety Report 9165736 (Version 1)
Quarter: 2013Q1

REPORT INFORMATION
  Report Type: Spontaneous
  Country: US (occurrence: US)
  Receive Date: 20130315
  Receipt Date: 20130315
  Transmission Date: 20140127
  Serious: Yes (Hospitalization)
  Sender: FDA-Public Use
  Company Number: US-SANOFI-AVENTIS-2013SA025596

PATIENT
  Age: 62 Year
  Sex: Female

DRUGS (4)
  1. LANTUS [Suspect]
     Indication: TYPE 2 DIABETES MELLITUS
  2. LANTUS SOLOSTAR [Suspect]
     Indication: TYPE 2 DIABETES MELLITUS
     Dosage: DOSE:20 UNIT(S)
     Dates: start: 201210
  3. SOLOSTAR [Suspect]
     Indication: TYPE 2 DIABETES MELLITUS
     Dates: start: 201210
  4. NOVOLOG [Concomitant]

REACTIONS (5)
  - Rotator cuff repair [Unknown]
  - Blood pressure abnormal [Unknown]
  - Adverse event [Unknown]
  - Blood glucose increased [Unknown]
  - Incorrect storage of drug [Unknown]
